FAERS Safety Report 7828326-X (Version None)
Quarter: 2011Q4

REPORT INFORMATION
  Report Type: 
  Country: None (occurrence: None)
  Receive Date: 20111020
  Receipt Date: 20111011
  Transmission Date: 20120403
  Serious: Yes (Hospitalization)
  Sender: FDA-Public Use
  Company Number: DE-MILLENNIUM PHARMACEUTICALS, INC.-2011-04809

PATIENT

DRUGS (5)
  1. AMLODIPINE BESYLATE [Concomitant]
     Dosage: 5 MG, UNK
     Route: 048
  2. ACYCLOVIR [Concomitant]
     Dosage: 800 MG, UNK
     Route: 048
     Dates: start: 20110101, end: 20110601
  3. CYCLOPHOSPHAMIDE [Concomitant]
     Indication: MULTIPLE MYELOMA
     Dosage: 200 MG/M2, UNK
     Route: 042
     Dates: start: 20110101, end: 20110601
  4. DEXAMETHASONE [Concomitant]
     Indication: MULTIPLE MYELOMA
     Dosage: 20 MG/M2, UNK
     Route: 048
     Dates: start: 20110101, end: 20110601
  5. VELCADE [Suspect]
     Indication: MULTIPLE MYELOMA
     Dosage: 1.3 MG/M2, UNK
     Route: 042
     Dates: start: 20110101, end: 20110601

REACTIONS (1)
  - LEUKOENCEPHALOPATHY [None]
